FAERS Safety Report 7396570-4 (Version None)
Quarter: 2011Q2

REPORT INFORMATION
  Report Type: 
  Country: None (occurrence: None)
  Receive Date: 20110406
  Receipt Date: 20110325
  Transmission Date: 20111010
  Serious: Yes (Death, Other)
  Sender: FDA-Public Use
  Company Number: ES-SANOFI-AVENTIS-2011SA020460

PATIENT

DRUGS (5)
  1. FLUDARABINE PHOSPHATE [Suspect]
     Route: 048
     Dates: start: 20040901, end: 20040901
  2. CYCLOPHOSPHAMIDE [Suspect]
     Dosage: DOSE:1 GRAM(S)/SQUARE METER
     Route: 065
  3. RITUXIMAB [Suspect]
     Dosage: FOR 4 WEEKS EVERY 6 MONTHS
     Route: 065
  4. FLUDARABINE PHOSPHATE [Suspect]
     Route: 048
     Dates: start: 20060301, end: 20060301
  5. FLUDARABINE PHOSPHATE [Suspect]
     Route: 048

REACTIONS (2)
  - MYELODYSPLASTIC SYNDROME [None]
  - ACUTE MYELOID LEUKAEMIA [None]
